FAERS Safety Report 4481244-X (Version None)
Quarter: 2004Q4

REPORT INFORMATION
  Report Type: 
  Country: None (occurrence: None)
  Receive Date: 20040923
  Receipt Date: 20040629
  Transmission Date: 20050328
  Serious: No
  Sender: FDA-Public Use
  Company Number: USA030229305

PATIENT
  Age: 76 Year
  Sex: Female
  Weight: 46 kg

DRUGS (8)
  1. FORTEO [Suspect]
     Indication: OSTEOPOROSIS
     Dosage: 20 UG DAY
     Dates: start: 20030121
  2. LANOXIN [Concomitant]
  3. IRON DEXTRAN [Concomitant]
  4. EXTRA STRENGTH TYLENOL [Concomitant]
  5. CALCIUM [Concomitant]
  6. CENTRUM [Concomitant]
  7. ACETYLSALICYLIC ACID SRT [Concomitant]
  8. SYNTHROID [Concomitant]

REACTIONS (7)
  - ANXIETY [None]
  - ARTHRITIS [None]
  - BONE DENSITY DECREASED [None]
  - DIZZINESS [None]
  - HOT FLUSH [None]
  - INJECTION SITE BURNING [None]
  - TACHYCARDIA [None]
